FAERS Safety Report 18593067 (Version 1)
Quarter: 2020Q4

REPORT INFORMATION
  Report Type: Spontaneous
  Country: GB (occurrence: GB)
  Receive Date: 20201208
  Receipt Date: 20201208
  Transmission Date: 20210114
  Serious: Yes (Hospitalization)
  Sender: FDA-Public Use
  Company Number: GB-PURDUE-USA-2020-0182012

PATIENT
  Age: 82 Year
  Sex: Female

DRUGS (1)
  1. UNIPHYLLIN CONTINUS [Suspect]
     Active Substance: THEOPHYLLINE ANHYDROUS
     Indication: CHRONIC OBSTRUCTIVE PULMONARY DISEASE
     Dosage: 100 MG, BID (HALF A UNIPHYLLIN 200MG TABLET, BID)
     Route: 065

REACTIONS (2)
  - Hospitalisation [Unknown]
  - Product prescribing error [Unknown]
